FAERS Safety Report 4636305-9 (Version None)
Quarter: 2005Q2

REPORT INFORMATION
  Report Type: 
  Country: None (occurrence: None)
  Receive Date: 20050415
  Receipt Date: 20040811
  Transmission Date: 20051028
  Serious: Yes (Other)
  Sender: FDA-Public Use
  Company Number: US-BRISTOL-MYERS SQUIBB COMPANY-12668307

PATIENT
  Sex: Female
  Weight: 91 kg

DRUGS (4)
  1. PARAPLATIN [Suspect]
     Indication: OVARIAN CANCER
     Dosage: THERAPY DATES 19-JUL TO 11-AUG-2004
     Route: 042
     Dates: start: 20040811, end: 20040811
  2. DECADRON [Concomitant]
     Indication: PREMEDICATION
     Dosage: ALSO RECEIVED ON 19-JUL-2004
     Route: 042
     Dates: start: 20040811, end: 20040811
  3. EMEND [Concomitant]
     Indication: PREMEDICATION
     Dosage: ALSO RECEIVED ON 19-JUL-2004
     Route: 048
     Dates: start: 20040811, end: 20040811
  4. ZOFRAN [Concomitant]
     Indication: PREMEDICATION
     Dosage: ALSO RECEIVED ON 19-JUL-2004
     Route: 042
     Dates: start: 20040811, end: 20040811

REACTIONS (1)
  - ANAPHYLACTIC REACTION [None]
